FAERS Safety Report 4531966-7 (Version None)
Quarter: 2004Q4

REPORT INFORMATION
  Report Type: 
  Country: None (occurrence: None)
  Receive Date: 20041216
  Receipt Date: 20041212
  Transmission Date: 20050328
  Serious: Yes (Death, Life-Threatening)
  Sender: FDA-Public Use
  Company Number: OXYA20040004

PATIENT
  Age: 25 Year
  Sex: Male

DRUGS (2)
  1. ACETAMINOPHEN/OXYCODONE     UNKNOWN     UNKNOWN [Suspect]
     Dosage: PO
     Route: 048
     Dates: end: 20030101
  2. COCAINE (CRACK) [Suspect]
     Dosage: OTHER
     Route: 050
     Dates: end: 20030101

REACTIONS (9)
  - ACUTE MYOCARDIAL INFARCTION [None]
  - CARDIAC ARREST [None]
  - COMA [None]
  - CORONARY ARTERY ATHEROSCLEROSIS [None]
  - CORONARY ARTERY OCCLUSION [None]
  - DRUG TOXICITY [None]
  - HYPOKALAEMIA [None]
  - INTENTIONAL OVERDOSE [None]
  - VENTRICULAR FIBRILLATION [None]
